FAERS Safety Report 21345811 (Version 6)
Quarter: 2022Q4

REPORT INFORMATION
  Report Type: Spontaneous
  Country: FR (occurrence: FR)
  Receive Date: 20220916
  Receipt Date: 20221219
  Transmission Date: 20230113
  Serious: Yes (Life-Threatening, Other)
  Sender: FDA-Public Use
  Company Number: FR-INCYTE CORPORATION-2022IN008826

PATIENT

DRUGS (58)
  1. TAFASITAMAB [Suspect]
     Active Substance: TAFASITAMAB
     Indication: Diffuse large B-cell lymphoma
     Dosage: 12 MILLIGRAM/KILOGRAM, CYLICAL
     Route: 042
     Dates: start: 20220217, end: 20220818
  2. TAFASITAMAB [Suspect]
     Active Substance: TAFASITAMAB
     Dosage: 12 MILLIGRAM/KILOGRAM (780MG)
     Route: 065
     Dates: start: 20220217, end: 20220831
  3. REVLIMID [Suspect]
     Active Substance: LENALIDOMIDE
     Indication: Diffuse large B-cell lymphoma
     Dosage: 5 MILLIGRAM, CYCLICAL
     Route: 048
     Dates: start: 20220217
  4. REVLIMID [Suspect]
     Active Substance: LENALIDOMIDE
     Indication: B-cell lymphoma
     Dosage: 5MG PER DAY IN THE MORNING DURING THREE WEEKS OF FOUR WEEKS
     Route: 065
     Dates: start: 20220217, end: 20220804
  5. CEFTRIAXONE [Concomitant]
     Active Substance: CEFTRIAXONE
     Indication: Escherichia infection
     Dosage: UNK
     Route: 065
     Dates: start: 20220204
  6. OFLOXACIN [Concomitant]
     Active Substance: OFLOXACIN
     Indication: Escherichia infection
     Dosage: UNK
     Route: 065
     Dates: start: 20220204
  7. MIANSERIN HYDROCHLORIDE [Concomitant]
     Active Substance: MIANSERIN HYDROCHLORIDE
     Indication: Product used for unknown indication
     Dosage: 10 MG: 1 TABLET IN THE EVENING
     Route: 065
  8. SERTRALINE [Concomitant]
     Active Substance: SERTRALINE HYDROCHLORIDE
     Indication: Product used for unknown indication
     Dosage: 50 MG: 2 TABLETS IN THE MORNING
     Route: 065
  9. PREGABALIN [Concomitant]
     Active Substance: PREGABALIN
     Indication: Product used for unknown indication
     Dosage: 25 MG: 1 TABLET IN THE MORNING AND 1 TABLET IN THE EVENING
     Route: 065
  10. PREGABALIN [Concomitant]
     Active Substance: PREGABALIN
     Dosage: 25 MG: 1 TABLET IN THE MORNING AND 1 TABLET IN THE EVENING
     Route: 065
  11. PREGABALIN [Concomitant]
     Active Substance: PREGABALIN
     Dosage: 25 MG: 1 TABLET IN THE MORNING AND 1 TABLET IN THE EVENING
     Route: 065
  12. OXAZEPAM [Concomitant]
     Active Substance: OXAZEPAM
     Indication: Sleep disorder
     Dosage: 10 MG: 1 TABLET IN THE EVENING TO SLEEP
     Route: 065
  13. OXAZEPAM [Concomitant]
     Active Substance: OXAZEPAM
     Dosage: 10 MG: 1 TABLET IN THE EVENING TO SLEEP
     Route: 065
  14. OXAZEPAM [Concomitant]
     Active Substance: OXAZEPAM
     Dosage: 10 MG: 1 TABLET IN THE EVENING TO SLEEP
     Route: 065
  15. POLYETHYLENE GLYCOLS [Concomitant]
     Active Substance: POLYETHYLENE GLYCOLS
     Indication: Product used for unknown indication
     Dosage: 1 IN THE MORNING TO TAKE EVERY DAY, EXCEPT DIARRHEA
     Route: 065
  16. POLYETHYLENE GLYCOLS [Concomitant]
     Active Substance: POLYETHYLENE GLYCOLS
     Dosage: 1 IN THE MORNING TO TAKE EVERY DAY, EXCEPT DIARRHEA
     Route: 065
  17. POLYETHYLENE GLYCOLS [Concomitant]
     Active Substance: POLYETHYLENE GLYCOLS
     Dosage: 1 IN THE MORNING TO TAKE EVERY DAY, EXCEPT DIARRHEA
     Route: 065
  18. RACECADOTRIL [Concomitant]
     Active Substance: RACECADOTRIL
     Indication: Diarrhoea
     Dosage: 100 MG: 1 TABLET IN MORNING, 1 AT NOON AND 1 IN THE EVENING IN CASE OF DIARRHEA
     Route: 065
  19. RACECADOTRIL [Concomitant]
     Active Substance: RACECADOTRIL
     Dosage: 100 MG: 1 TABLET IN MORNING, 1 AT NOON AND 1 IN THE EVENING IN CASE OF DIARRHEA
     Route: 065
  20. RACECADOTRIL [Concomitant]
     Active Substance: RACECADOTRIL
     Dosage: 100 MG: 1 TABLET IN MORNING, 1 AT NOON AND 1 IN THE EVENING IN CASE OF DIARRHEA
     Route: 065
  21. ACETAMINOPHEN [Concomitant]
     Active Substance: ACETAMINOPHEN
     Indication: Pain
     Dosage: 1000: 1 TABLET MORNING, 1 AT NOON AND 1 IN THE EVENING IN CASE OF PAIN
     Route: 065
  22. ACETAMINOPHEN [Concomitant]
     Active Substance: ACETAMINOPHEN
     Dosage: 1000: 1 TABLET MORNING, 1 AT NOON AND 1 IN THE EVENING IN CASE OF PAIN
     Route: 065
  23. ACETAMINOPHEN [Concomitant]
     Active Substance: ACETAMINOPHEN
     Dosage: 1000: 1 TABLET MORNING, 1 AT NOON AND 1 IN THE EVENING IN CASE OF PAIN
     Route: 065
  24. CARBOMER [Concomitant]
     Active Substance: CARBOMER
     Indication: Product used for unknown indication
     Dosage: IN EVERY EYE
  25. CARBOMER [Concomitant]
     Active Substance: CARBOMER
     Dosage: IN EVERY EYE
  26. CARBOMER [Concomitant]
     Active Substance: CARBOMER
     Dosage: IN EVERY EYE
  27. LATANOPROST [Concomitant]
     Active Substance: LATANOPROST
     Indication: Product used for unknown indication
     Dosage: 1 IN THE EVENING IN THE LEFT EYE
  28. LATANOPROST [Concomitant]
     Active Substance: LATANOPROST
     Dosage: 1 IN THE EVENING IN THE LEFT EYE
  29. LATANOPROST [Concomitant]
     Active Substance: LATANOPROST
     Dosage: 1 IN THE EVENING IN THE LEFT EYE
  30. COSOPT [Concomitant]
     Active Substance: DORZOLAMIDE HYDROCHLORIDE\TIMOLOL MALEATE
     Indication: Product used for unknown indication
     Dosage: 1 G: MORNING AND EVENING LEFT EYE
  31. COSOPT [Concomitant]
     Active Substance: DORZOLAMIDE HYDROCHLORIDE\TIMOLOL MALEATE
     Dosage: 1 G: MORNING AND EVENING LEFT EYE
  32. COSOPT [Concomitant]
     Active Substance: DORZOLAMIDE HYDROCHLORIDE\TIMOLOL MALEATE
     Dosage: 1 G: MORNING AND EVENING LEFT EYE
  33. PANTOPRAZOLE [Concomitant]
     Active Substance: PANTOPRAZOLE
     Indication: Product used for unknown indication
     Dosage: 20 MILLIGRAM, QPM
     Route: 065
  34. PANTOPRAZOLE [Concomitant]
     Active Substance: PANTOPRAZOLE
     Dosage: 20 MILLIGRAM, QPM
     Route: 065
  35. PANTOPRAZOLE [Concomitant]
     Active Substance: PANTOPRAZOLE
     Dosage: 20 MILLIGRAM, QPM
     Route: 065
  36. CALCIUM VITAMINE D3 BIOGARAN [Concomitant]
     Indication: Product used for unknown indication
     Dosage: 1 DOSAGE FORM, QD (1 TABLET AT NOON)
     Route: 065
  37. CALCIUM VITAMINE D3 BIOGARAN [Concomitant]
     Dosage: 1 DOSAGE FORM, QD (1 TABLET AT NOON)
     Route: 065
  38. KARDEGIC [Concomitant]
     Active Substance: ASPIRIN DL-LYSINE
     Indication: Product used for unknown indication
     Dosage: 75 MG: 1 SACHET AT NOON
     Route: 065
  39. KARDEGIC [Concomitant]
     Active Substance: ASPIRIN DL-LYSINE
     Dosage: 75 MG: 1 SACHET AT NOON
     Route: 065
  40. KARDEGIC [Concomitant]
     Active Substance: ASPIRIN DL-LYSINE
     Dosage: 75 MG: 1 SACHET AT NOON
     Route: 065
  41. ELIQUIS [Concomitant]
     Active Substance: APIXABAN
     Indication: Product used for unknown indication
     Dosage: 2, 5 MG: 1 TABLET IN THE MORNING AND EVENING
     Route: 065
  42. ELIQUIS [Concomitant]
     Active Substance: APIXABAN
     Dosage: 2, 5 MG: 1 TABLET IN THE MORNING AND EVENING
     Route: 065
  43. ELIQUIS [Concomitant]
     Active Substance: APIXABAN
     Dosage: 2, 5 MG: 1 TABLET IN THE MORNING AND EVENING
     Route: 065
  44. VALACYCLOVIR HYDROCHLORIDE [Concomitant]
     Active Substance: VALACYCLOVIR HYDROCHLORIDE
     Indication: Product used for unknown indication
     Dosage: 500: 1 TABLET IN THE MORNING AND EVENING, EVERY DAY
     Route: 065
  45. VALACYCLOVIR HYDROCHLORIDE [Concomitant]
     Active Substance: VALACYCLOVIR HYDROCHLORIDE
     Dosage: 500 MILLIGRAM: 1 TABLET IN THE MORNING AND EVENING, EVERY DAY
     Route: 065
  46. VALACYCLOVIR HYDROCHLORIDE [Concomitant]
     Active Substance: VALACYCLOVIR HYDROCHLORIDE
     Dosage: 500 MILLIGRAM: 1 TABLET IN THE MORNING AND EVENING, EVERY DAY
     Route: 065
  47. BACTRIM [Concomitant]
     Active Substance: SULFAMETHOXAZOLE\TRIMETHOPRIM
     Indication: Product used for unknown indication
     Dosage: 1 TABLET/DAY IN MONDAYS, WEDNESDAYS AND FRIDAYS
     Route: 065
  48. BACTRIM [Concomitant]
     Active Substance: SULFAMETHOXAZOLE\TRIMETHOPRIM
     Dosage: 1 TABLET/DAY IN MONDAYS, WEDNESDAYS AND FRIDAYS
     Route: 065
  49. BACTRIM [Concomitant]
     Active Substance: SULFAMETHOXAZOLE\TRIMETHOPRIM
     Dosage: 1 TABLET/DAY IN MONDAYS, WEDNESDAYS AND FRIDAYS
     Route: 065
  50. FOLIC ACID [Concomitant]
     Active Substance: FOLIC ACID
     Indication: Product used for unknown indication
     Dosage: 1 TABLET/DAY IN MONDAYS, WEDNESDAYS AND FRIDAYS
     Route: 065
  51. FOLIC ACID [Concomitant]
     Active Substance: FOLIC ACID
     Dosage: 5 MILLIGRAM
     Route: 065
  52. FOLIC ACID [Concomitant]
     Active Substance: FOLIC ACID
     Dosage: 5 MILLIGRAM
     Route: 065
  53. FILGRASTIM [Concomitant]
     Active Substance: FILGRASTIM
     Indication: Product used for unknown indication
     Dosage: UNK MILLIGRAM
     Route: 058
  54. FILGRASTIM [Concomitant]
     Active Substance: FILGRASTIM
     Dosage: ONE SUBCUTANEOUS INJECTION ON TUESDAYS AND FRIDAYS BY THE RN AT HOME
     Route: 058
  55. FILGRASTIM [Concomitant]
     Active Substance: FILGRASTIM
     Dosage: 30 MU/0.5 ML
     Route: 065
  56. FILGRASTIM [Concomitant]
     Active Substance: FILGRASTIM
     Dosage: ONE SUBCUTANEOUS INJECTION ON TUESDAYS AND FRIDAYS BY THE RN AT HOME
     Route: 058
  57. METHYLPREDNISOLONE [Concomitant]
     Active Substance: METHYLPREDNISOLONE
     Indication: Product used for unknown indication
     Dosage: 70 MILLIGRAM
     Route: 065
  58. METHYLPREDNISOLONE [Concomitant]
     Active Substance: METHYLPREDNISOLONE
     Dosage: 70 MILLIGRAM
     Route: 065
     Dates: start: 202202, end: 202208

REACTIONS (3)
  - Progressive multifocal leukoencephalopathy [Not Recovered/Not Resolved]
  - JC virus infection [Not Recovered/Not Resolved]
  - Immunosuppression [Not Recovered/Not Resolved]

NARRATIVE: CASE EVENT DATE: 20220501
